FAERS Safety Report 15626673 (Version 1)
Quarter: 2018Q4

REPORT INFORMATION
  Report Type: Spontaneous
  Country: DE (occurrence: DE)
  Receive Date: 20181116
  Receipt Date: 20181116
  Transmission Date: 20190205
  Serious: Yes (Hospitalization, Other)
  Sender: FDA-Public Use
  Company Number: DE-ELI_LILLY_AND_COMPANY-DE201811005596

PATIENT
  Age: 72 Year
  Sex: Female
  Weight: 118 kg

DRUGS (6)
  1. METOPROLOL. [Concomitant]
     Active Substance: METOPROLOL
     Indication: HYPERTENSION
     Dosage: 200 MG, DAILY
     Route: 048
  2. BARICITINIB [Suspect]
     Active Substance: BARICITINIB
     Indication: POLYARTHRITIS
     Dosage: 2 MG, DAILY
     Route: 048
     Dates: start: 201809
  3. MARCUMAR [Concomitant]
     Active Substance: PHENPROCOUMON
     Indication: ATRIAL FIBRILLATION
     Dosage: UNK, UNKNOWN
     Route: 048
  4. LISINOPRIL AND HYDROCHLOROTHIAZIDE [Concomitant]
     Active Substance: HYDROCHLOROTHIAZIDE\LISINOPRIL
     Indication: HYPERTENSION
     Dosage: 2 DF, DAILY
     Route: 048
  5. MULTAQ [Concomitant]
     Active Substance: DRONEDARONE
     Indication: PRODUCT USED FOR UNKNOWN INDICATION
     Dosage: UNK, UNKNOWN
     Route: 048
  6. DEKRISTOL [Concomitant]
     Active Substance: CHOLECALCIFEROL
     Indication: OSTEOPOROSIS
     Dosage: 20 IU, 2/M
     Route: 048

REACTIONS (2)
  - Ophthalmic herpes zoster [Not Recovered/Not Resolved]
  - Herpes zoster [Not Recovered/Not Resolved]

NARRATIVE: CASE EVENT DATE: 20181021
